FAERS Safety Report 4926044-9 (Version None)
Quarter: 2006Q1

REPORT INFORMATION
  Report Type: 
  Country: None (occurrence: None)
  Receive Date: 20060228
  Receipt Date: 20050803
  Transmission Date: 20060701
  Serious: No
  Sender: FDA-Public Use
  Company Number: US-GLAXOSMITHKLINE-A0568810A

PATIENT
  Age: 38 Year
  Sex: Female
  Weight: 81.8 kg

DRUGS (1)
  1. LAMICTAL [Suspect]
     Indication: BIPOLAR DISORDER
     Dosage: 25MG SINGLE DOSE
     Route: 048
     Dates: start: 20050801, end: 20050801

REACTIONS (1)
  - RASH MACULAR [None]
